FAERS Safety Report 22641816 (Version 1)
Quarter: 2023Q2

REPORT INFORMATION
  Report Type: Spontaneous
  Country: FR (occurrence: FR)
  Receive Date: 20230626
  Receipt Date: 20230626
  Transmission Date: 20230722
  Serious: Yes (Other)
  Sender: FDA-Public Use
  Company Number: None

PATIENT
  Age: 72 Year
  Sex: Female
  Weight: 55 kg

DRUGS (2)
  1. CIPROFLOXACIN [Suspect]
     Active Substance: CIPROFLOXACIN
     Indication: Bacteraemia
     Dosage: 750 MG TWICE A DAY FROM 02/24 TO 28 THEN 500 MG TWICE A DAY FROM 02/28 TO 03/08
     Route: 065
     Dates: start: 20230224, end: 20230308
  2. BACTRIM [Suspect]
     Active Substance: SULFAMETHOXAZOLE\TRIMETHOPRIM
     Indication: Bacteraemia
     Dosage: 2 DOSAGE FORMS DAILY; 1-0-1
     Dates: start: 20230224, end: 20230306

REACTIONS (3)
  - Leukopenia [Unknown]
  - Toxic skin eruption [Recovered/Resolved]
  - Neutropenia [Unknown]

NARRATIVE: CASE EVENT DATE: 20230306
